FAERS Safety Report 8643850 (Version 6)
Quarter: 2017Q4

REPORT INFORMATION
  Report Type: Spontaneous
  Country: US (occurrence: US)
  Receive Date: 20120629
  Receipt Date: 20171010
  Transmission Date: 20180321
  Serious: Yes (Hospitalization, Disabling, Other)
  Sender: FDA-Public Use
  Company Number: US-009507513-1206USA04852

PATIENT
  Sex: Female
  Weight: 69.84 kg

DRUGS (4)
  1. FOSAMAX PLUS D [Suspect]
     Active Substance: ALENDRONATE SODIUM\CHOLECALCIFEROL
     Dosage: UNK
     Route: 048
     Dates: start: 20070116
  2. FOSAMAX [Suspect]
     Active Substance: ALENDRONATE SODIUM
     Indication: OSTEOPOROSIS
     Dosage: 70 MG, QD
     Route: 048
     Dates: start: 200611, end: 200804
  3. ZOCOR [Concomitant]
     Active Substance: SIMVASTATIN
     Indication: BLOOD CHOLESTEROL INCREASED
     Route: 048
  4. CHANTIX [Concomitant]
     Active Substance: VARENICLINE TARTRATE
     Indication: TOBACCO ABUSE
     Route: 065

REACTIONS (51)
  - Low turnover osteopathy [Unknown]
  - Ear operation [Unknown]
  - Encephalitis [Unknown]
  - Impaired gastric emptying [Unknown]
  - Dysphagia [Unknown]
  - Back pain [Not Recovered/Not Resolved]
  - Inguinal hernia repair [Unknown]
  - Hypoacusis [Unknown]
  - Encephalitis [Unknown]
  - Pseudarthrosis [Unknown]
  - Intervertebral disc degeneration [Unknown]
  - Pelvic fracture [Unknown]
  - Vitamin D deficiency [Unknown]
  - Iritis [Unknown]
  - Nerve compression [Unknown]
  - Brain abscess [Unknown]
  - Reflexes abnormal [Unknown]
  - Osteoporosis [Unknown]
  - Stress fracture [Unknown]
  - Haemorrhagic stroke [Unknown]
  - Surgery [Unknown]
  - Scoliosis [Unknown]
  - Fibromyalgia [Unknown]
  - Fall [Unknown]
  - Neuropathy peripheral [Unknown]
  - Neoplasm [Unknown]
  - Calcium deficiency [Unknown]
  - Encephalitis [Unknown]
  - Spinal fusion surgery [Unknown]
  - Nervous system disorder [Unknown]
  - Reflux laryngitis [Unknown]
  - Eye irritation [Unknown]
  - Foot deformity [Unknown]
  - Road traffic accident [Unknown]
  - Spinal osteoarthritis [Unknown]
  - Complication associated with device [Unknown]
  - Bursitis [Unknown]
  - Femur fracture [Unknown]
  - Femur fracture [Unknown]
  - Joint swelling [Recovered/Resolved]
  - Spinal operation [Unknown]
  - Encephalitis [Unknown]
  - Gastroenteritis [Unknown]
  - Lumbar vertebral fracture [Unknown]
  - Rib fracture [Unknown]
  - Ear infection [Unknown]
  - Asthma [Unknown]
  - Arthralgia [Recovered/Resolved]
  - Spinal operation [Unknown]
  - Lumbar spinal stenosis [Unknown]
  - Anaemia [Unknown]

NARRATIVE: CASE EVENT DATE: 2006
